FAERS Safety Report 14991672 (Version 2)
Quarter: 2019Q1

REPORT INFORMATION
  Report Type: Spontaneous
  Country: US (occurrence: US)
  Receive Date: 20180608
  Receipt Date: 20190116
  Transmission Date: 20190417
  Serious: Yes (Hospitalization, Other)
  Sender: FDA-Public Use
  Company Number: US-SA-2018SA145542

PATIENT
  Age: 72 Year
  Sex: Male

DRUGS (2)
  1. TOUJEO [Suspect]
     Active Substance: INSULIN GLARGINE
     Indication: TYPE 1 DIABETES MELLITUS
     Dosage: 20 U, QD
     Route: 051
  2. TOUJEO [Suspect]
     Active Substance: INSULIN GLARGINE
     Dosage: 22 UNK
     Route: 051

REACTIONS (4)
  - Fall [Unknown]
  - Cataract operation [Unknown]
  - Localised infection [Unknown]
  - Wound [Unknown]

NARRATIVE: CASE EVENT DATE: 2016
